FAERS Safety Report 8148720 (Version 3)
Quarter: 2012Q4

REPORT INFORMATION
  Report Type: 
  Country: US (occurrence: US)
  Receive Date: 20110922
  Receipt Date: 20120910
  Transmission Date: 20130627
  Serious: No
  Sender: FDA-Public Use
  Company Number: US-ASTRAZENECA-2011SE09496

PATIENT
  Age: 47 Year
  Sex: Female
  Weight: 102.1 kg

DRUGS (7)
  1. SEROQUEL XR [Suspect]
     Indication: DEPRESSION
     Route: 048
  2. SEROQUEL XR [Suspect]
     Indication: BIPOLAR DISORDER
     Route: 048
  3. ABILIFY [Concomitant]
     Indication: BIPOLAR DISORDER
  4. DEPAKOTE [Concomitant]
     Indication: BIPOLAR DISORDER
  5. CELEXA [Concomitant]
     Indication: BIPOLAR DISORDER
  6. RESTORIL [Concomitant]
     Indication: SLEEP DISORDER
  7. NEXIUM [Concomitant]

REACTIONS (10)
  - Diarrhoea [Unknown]
  - Feeling abnormal [Unknown]
  - Migraine [Unknown]
  - Anxiety [Unknown]
  - Adverse event [Unknown]
  - Feeling abnormal [Unknown]
  - Malaise [Unknown]
  - Weight increased [Unknown]
  - Tremor [Unknown]
  - Drug dose omission [Unknown]
